FAERS Safety Report 6870748-8 (Version None)
Quarter: 2010Q3

REPORT INFORMATION
  Report Type: 
  Country: None (occurrence: None)
  Receive Date: 20100721
  Receipt Date: 20100702
  Transmission Date: 20110219
  Serious: Yes (Other)
  Sender: FDA-Public Use
  Company Number: JP-SOLVAY-00310004022

PATIENT
  Age: 39 Year
  Sex: Female

DRUGS (1)
  1. LUVOX [Suspect]
     Indication: PRODUCT USED FOR UNKNOWN INDICATION
     Dosage: 55 DOSAGE FORM
     Route: 048

REACTIONS (3)
  - GASTROINTESTINAL DISORDER [None]
  - OVERDOSE [None]
  - SUICIDE ATTEMPT [None]
